FAERS Safety Report 18717764 (Version 1)
Quarter: 2021Q1

REPORT INFORMATION
  Report Type: Spontaneous
  Country: US (occurrence: US)
  Receive Date: 20210108
  Receipt Date: 20210108
  Transmission Date: 20210419
  Serious: Yes (Other)
  Sender: FDA-Public Use
  Company Number: US-PURDUE-USA-2020-0192117

PATIENT
  Sex: Female

DRUGS (2)
  1. OXYCONTIN [Suspect]
     Active Substance: OXYCODONE HYDROCHLORIDE
     Indication: BACK PAIN
     Dosage: 150 MG, DAILY
     Route: 048
     Dates: start: 2005
  2. OXYCONTIN [Suspect]
     Active Substance: OXYCODONE HYDROCHLORIDE
     Dosage: 240 MG, DAILY
     Route: 048
     Dates: start: 2005

REACTIONS (12)
  - Asthenia [Unknown]
  - Therapeutic product effect decreased [Unknown]
  - Withdrawal syndrome [Unknown]
  - Post-traumatic stress disorder [Not Recovered/Not Resolved]
  - Bedridden [Unknown]
  - Unevaluable event [Unknown]
  - Large intestine operation [Unknown]
  - Spinal disorder [Unknown]
  - Osteoarthritis [Unknown]
  - Rhinorrhoea [Unknown]
  - Clavicle fracture [Unknown]
  - Hand fracture [Unknown]

NARRATIVE: CASE EVENT DATE: 2016
